FAERS Safety Report 24024789 (Version 2)
Quarter: 2024Q3

REPORT INFORMATION
  Report Type: Spontaneous
  Country: US (occurrence: US)
  Receive Date: 20240628
  Receipt Date: 20240710
  Transmission Date: 20241017
  Serious: No
  Sender: ROCHE
  Company Number: US-ROCHE-3429826

PATIENT
  Age: 62 Year
  Sex: Female

DRUGS (5)
  1. PHESGO [Suspect]
     Active Substance: HYALURONIDASE-ZZXF\PERTUZUMAB\TRASTUZUMAB
     Indication: Breast cancer stage II
     Route: 065
  2. PERJETA [Concomitant]
     Active Substance: PERTUZUMAB
     Indication: Breast cancer stage II
  3. DOCETAXEL [Concomitant]
     Active Substance: DOCETAXEL\DOCETAXEL ANHYDROUS
     Indication: Breast cancer stage II
  4. CARBOPLATIN [Concomitant]
     Active Substance: CARBOPLATIN
     Indication: Breast cancer stage II
  5. TRASTUZUMAB [Concomitant]
     Active Substance: TRASTUZUMAB
     Indication: Breast cancer stage II
     Route: 065

REACTIONS (1)
  - Optic neuropathy [Not Recovered/Not Resolved]
